FAERS Safety Report 6159717-3 (Version None)
Quarter: 2009Q2

REPORT INFORMATION
  Report Type: 
  Country: None (occurrence: None)
  Receive Date: 20090415
  Receipt Date: 20090407
  Transmission Date: 20091009
  Serious: Yes (Congenital Anomaly)
  Sender: FDA-Public Use
  Company Number: 2009JP000437

PATIENT
  Age: 36 Year
  Sex: Female
  Weight: 60 kg

DRUGS (8)
  1. PROGRAF [Suspect]
     Indication: DERMATITIS ATOPIC
     Dosage: 0.1% TOPICAL
     Route: 061
     Dates: start: 20020801
  2. IMURAN [Concomitant]
  3. . [Concomitant]
  4. . [Concomitant]
  5. . [Concomitant]
  6. . [Concomitant]
  7. . [Concomitant]
  8. . [Concomitant]

REACTIONS (2)
  - DRUG EXPOSURE DURING PREGNANCY [None]
  - INTRA-UTERINE DEATH [None]
